FAERS Safety Report 17725085 (Version 1)
Quarter: 2020Q2

REPORT INFORMATION
  Report Type: Spontaneous
  Country: US (occurrence: US)
  Receive Date: 20200429
  Receipt Date: 20200429
  Transmission Date: 20200714
  Serious: Yes (Disabling)
  Sender: FDA-Public Use
  Company Number: None

PATIENT
  Age: 40 Year
  Sex: Female
  Weight: 74.25 kg

DRUGS (4)
  1. DEPO-PROVERA [Suspect]
     Active Substance: MEDROXYPROGESTERONE ACETATE
     Indication: CONTRACEPTION
     Dates: start: 20001228, end: 20180323
  2. ORTHOPEDIC SLIPPERS [Concomitant]
  3. NEXPLANON [Suspect]
     Active Substance: ETONOGESTREL
     Route: 058
     Dates: start: 20171001, end: 20180328
  4. CANE [Concomitant]

REACTIONS (2)
  - Pain [None]
  - Peripheral swelling [None]

NARRATIVE: CASE EVENT DATE: 20180501
